FAERS Safety Report 5910701-1 (Version None)
Quarter: 2008Q4

REPORT INFORMATION
  Report Type: 
  Country: None (occurrence: None)
  Receive Date: 20081006
  Receipt Date: 20081006
  Transmission Date: 20090506
  Serious: Yes (Hospitalization)
  Sender: FDA-Public Use
  Company Number: None

PATIENT
  Age: 87 Year
  Sex: Female

DRUGS (1)
  1. PHYTONADIONE [Suspect]
     Dosage: 0.5MG -0.25 ML-  OVER 10 MINUTES IV
     Route: 042
     Dates: start: 20080313, end: 20080313

REACTIONS (2)
  - HYPOXIA [None]
  - TREMOR [None]
